FAERS Safety Report 9512418 (Version 1)
Quarter: 2013Q1

REPORT INFORMATION
  Report Type: Spontaneous
  Country: US (occurrence: None)
  Receive Date: 20130305
  Receipt Date: 20130305
  Transmission Date: 20140127
  Serious: Yes (Other)
  Sender: FDA-Public Use
  Company Number: 163-21880-12051261

PATIENT
  Age: 82 Year
  Sex: Male
  Weight: 92.53 kg

DRUGS (2)
  1. REVLIMID(LENALIDOMIDE)(25 MILLIGRAM, CAPSULES) [Suspect]
     Indication: PLASMA CELL MYELOMA
     Dates: start: 201107
  2. DECADRON [Concomitant]

REACTIONS (2)
  - Platelet count decreased [None]
  - Skin disorder [None]
